FAERS Safety Report 5038523-7 (Version None)
Quarter: 2006Q2

REPORT INFORMATION
  Report Type: 
  Country: None (occurrence: None)
  Receive Date: 20060629
  Receipt Date: 20060622
  Transmission Date: 20061013
  Serious: Yes (Hospitalization)
  Sender: FDA-Public Use
  Company Number: PHHO2006JP10344

PATIENT
  Age: 61 Year
  Sex: Male

DRUGS (6)
  1. DIOVAN [Suspect]
     Indication: HYPERTENSION
     Dosage: 80 MG, QD
     Route: 048
     Dates: start: 20030415
  2. FLUITRAN [Concomitant]
     Indication: HYPERTENSION
  3. METFORMIN HCL [Concomitant]
     Indication: DIABETES MELLITUS
  4. TICLOPIDINE HCL [Concomitant]
     Indication: CEREBRAL INFARCTION
  5. NIVADIL [Concomitant]
     Indication: HYPERTENSION
  6. BASEN [Concomitant]
     Indication: DIABETES MELLITUS

REACTIONS (1)
  - HICCUPS [None]
